FAERS Safety Report 18401398 (Version 2)
Quarter: 2020Q4

REPORT INFORMATION
  Report Type: Spontaneous
  Country: ES (occurrence: ES)
  Receive Date: 20201019
  Receipt Date: 20201029
  Transmission Date: 20210114
  Serious: No
  Sender: FDA-Public Use
  Company Number: ES-MYLANLABS-2020M1065994

PATIENT
  Sex: Female

DRUGS (2)
  1. AMCHAFIBRIN 500 MG COMPRIMIDOS, ?CIDO TRANEX?MICO [Suspect]
     Active Substance: TRANEXAMIC ACID
     Indication: MOUTH HAEMORRHAGE
     Dosage: UNK
  2. AMCHAFIBRIN 500 MG SOLUCI?N INYECTABLE [Suspect]
     Active Substance: TRANEXAMIC ACID
     Indication: MOUTH HAEMORRHAGE
     Dosage: UNK
     Dates: start: 2020, end: 2020

REACTIONS (3)
  - Product substitution issue [Unknown]
  - Off label use [Recovered/Resolved]
  - Incorrect route of product administration [Recovered/Resolved]

NARRATIVE: CASE EVENT DATE: 2020
